FAERS Safety Report 8823492 (Version 1)
Quarter: 2012Q4

REPORT INFORMATION
  Report Type: 
  Country: US (occurrence: US)
  Receive Date: 20121003
  Receipt Date: 20121003
  Transmission Date: 20130627
  Serious: Yes (Other)
  Sender: FDA-Public Use
  Company Number: US-ASTRAZENECA-2010SE19678

PATIENT
  Age: 66 Year
  Sex: Female

DRUGS (19)
  1. RHINOCORT AQUA [Suspect]
     Route: 045
  2. SYMBICORT [Suspect]
     Indication: ASTHMA
     Dosage: TWICE A DAY
     Route: 055
     Dates: start: 2009, end: 20100422
  3. NEXIUM [Suspect]
     Indication: DYSPEPSIA
     Dosage: TOTAL DAILY DOSAGE 80 MG FREQUENCY  BID
     Route: 048
     Dates: start: 2009, end: 20100502
  4. NEXIUM [Suspect]
     Indication: DYSPEPSIA
     Route: 048
  5. ACCOLATE [Suspect]
     Indication: ASTHMA
     Route: 048
     Dates: start: 2000, end: 20100422
  6. ACCOLATE [Suspect]
     Indication: ASTHMA
     Route: 048
  7. SEROQUEL XR [Concomitant]
     Route: 048
  8. IVIG INFUSIONS [Concomitant]
     Dosage: ONCE IN THREE WEEKS
  9. NORVASC [Concomitant]
  10. VENTOLIN [Concomitant]
  11. NORCO [Concomitant]
  12. RYTEX [Concomitant]
  13. EFFEXOR [Concomitant]
  14. PRAVASTATIN [Concomitant]
  15. NIASPAN [Concomitant]
  16. LOMOTIL [Concomitant]
  17. ARICEPT [Concomitant]
  18. COMPAZINE [Concomitant]
  19. ZOFRAN [Concomitant]

REACTIONS (13)
  - Leukaemia [Unknown]
  - Asthma [Unknown]
  - Immunodeficiency common variable [Unknown]
  - Dyspnoea [Unknown]
  - Gastrointestinal erosion [Unknown]
  - Hypertension [Unknown]
  - Chest discomfort [Unknown]
  - Wheezing [Unknown]
  - Bronchitis [Unknown]
  - Dyspepsia [Unknown]
  - Intentional drug misuse [Unknown]
  - Circumstance or information capable of leading to medication error [Unknown]
  - Intentional drug misuse [Unknown]
